FAERS Safety Report 7395410-7 (Version None)
Quarter: 2011Q2

REPORT INFORMATION
  Report Type: 
  Country: None (occurrence: None)
  Receive Date: 20110405
  Receipt Date: 20101220
  Transmission Date: 20111010
  Serious: Yes (Hospitalization, Other)
  Sender: FDA-Public Use
  Company Number: US-BAYER-200943726NA

PATIENT
  Sex: Female
  Weight: 44.444 kg

DRUGS (7)
  1. IBUPROFEN [Concomitant]
     Indication: PRODUCT USED FOR UNKNOWN INDICATION
  2. PLAN B [Concomitant]
     Indication: PRODUCT USED FOR UNKNOWN INDICATION
     Dosage: 0.75 MG (DAILY DOSE), ,
     Dates: start: 20080529
  3. METRONIDAZOLE [Concomitant]
     Indication: PRODUCT USED FOR UNKNOWN INDICATION
     Dosage: DAILY DOSE -1 MG
     Dates: start: 20070217
  4. YAZ [Suspect]
  5. YASMIN [Suspect]
     Indication: CONTRACEPTION
     Dates: start: 20060414, end: 20090115
  6. PROMETHAZINE [Concomitant]
     Indication: PRODUCT USED FOR UNKNOWN INDICATION
     Dosage: 25 MG (DAILY DOSE), ,
     Dates: start: 20080926
  7. MEDROXYPROGESTERONE [Concomitant]
     Indication: PRODUCT USED FOR UNKNOWN INDICATION
     Dosage: 150 MG (DAILY DOSE), , INTRAMUSCULAR
     Route: 030
     Dates: start: 20080521

REACTIONS (4)
  - DEEP VEIN THROMBOSIS [None]
  - MUSCLE TIGHTNESS [None]
  - DEPRESSION [None]
  - PAIN [None]
